FAERS Safety Report 8841775 (Version 1)
Quarter: 2012Q4

REPORT INFORMATION
  Report Type: Report from Study
  Country: JP (occurrence: JP)
  Receive Date: 20121016
  Receipt Date: 20121016
  Transmission Date: 20130627
  Serious: Yes (Hospitalization)
  Sender: FDA-Public Use
  Company Number: JP-009507513-2012SP031065

PATIENT
  Age: 61 Year
  Sex: Male
  Weight: 64 kg

DRUGS (14)
  1. PEGINTERFERON ALFA-2B [Suspect]
     Indication: HEPATITIS C
     Dosage: 1.5 Microgram per kilogram, qw
     Route: 058
     Dates: start: 20120403, end: 20120918
  2. REBETOL [Suspect]
     Indication: HEPATITIS C
     Dosage: 600 mg, QD
     Route: 048
     Dates: start: 20120403, end: 20120406
  3. REBETOL [Suspect]
     Dosage: 400 mg, QD
     Route: 048
     Dates: start: 20120407, end: 20120918
  4. TELAVIC [Suspect]
     Indication: HEPATITIS C
     Dosage: 1500 mg, QD
     Route: 048
     Dates: start: 20120403, end: 20120406
  5. TELAVIC [Suspect]
     Dosage: 1000 mg, QD
     Route: 048
     Dates: start: 20120407, end: 20120518
  6. ALOSITOL [Concomitant]
     Indication: GOUT
     Dosage: 300 mg, QD
     Route: 048
  7. HIRUDOID [Concomitant]
     Indication: PROPHYLAXIS
     Dosage: proper quantity/day
     Route: 048
     Dates: start: 20120403
  8. MANNIGEN [Concomitant]
     Dosage: 100 ml, QD
     Route: 042
     Dates: start: 20120406, end: 20120511
  9. DICLOFENAC [Concomitant]
     Dosage: AS NEEDED
     Route: 048
  10. PONTAL [Concomitant]
     Dosage: AS NEEDED
     Route: 048
  11. URALYT [Concomitant]
     Indication: GOUT
     Dosage: 2 UNK, UNK
     Route: 048
  12. NEOPHAGEN C TABLETS [Concomitant]
     Indication: HEPATITIS C
     Dosage: 100 ml, UNK
     Route: 042
     Dates: start: 20120413, end: 20120501
  13. NEOPHAGEN C TABLETS [Concomitant]
     Dosage: 100 ml, UNK
     Route: 042
     Dates: start: 20120530, end: 20120619
  14. GLYCYRON [Concomitant]
     Indication: HEPATITIS C
     Dosage: 6 DF, UNK
     Route: 048
     Dates: start: 20120621

REACTIONS (2)
  - Renal disorder [Recovered/Resolved]
  - Rash [Recovered/Resolved]
